FAERS Safety Report 10704343 (Version 1)
Quarter: 2015Q1

REPORT INFORMATION
  Report Type: Spontaneous
  Country: FR (occurrence: FR)
  Receive Date: 20150112
  Receipt Date: 20150112
  Transmission Date: 20150721
  Serious: Yes (Hospitalization, Other)
  Sender: FDA-Public Use
  Company Number: FR-PFIZER INC-2015008637

PATIENT
  Age: 84 Year
  Sex: Male

DRUGS (11)
  1. VITAMIN K [Suspect]
     Active Substance: PHYTONADIONE
     Dosage: UNK
  2. PERINDOPRIL [Concomitant]
     Active Substance: PERINDOPRIL
     Dosage: 2 MG, DAILY
  3. VENLAFAXINE HCL [Suspect]
     Active Substance: VENLAFAXINE HYDROCHLORIDE
     Dosage: 1 DF, 2X/DAY
     Route: 048
  4. SEVREDOL [Suspect]
     Active Substance: MORPHINE
     Dosage: 10 MG, 3X/DAY
     Route: 048
  5. GABAPENTINE PFIZER [Suspect]
     Active Substance: GABAPENTIN
     Dosage: 100 MG, 3X/DAY
     Route: 048
  6. PREVISCAN [Suspect]
     Active Substance: FLUINDIONE
     Dosage: 1.5 DF (30 MG), DAILY
     Route: 048
  7. TRAMADOL [Suspect]
     Active Substance: TRAMADOL
     Dosage: 50 MG, DAILY
     Route: 048
  8. FUROSEMIDE. [Suspect]
     Active Substance: FUROSEMIDE
     Dosage: 40 MG, 2X/DAY
     Route: 048
  9. CHIBRO-PROSCAR [Concomitant]
     Active Substance: FINASTERIDE
     Dosage: 5 MG, DAILY
     Route: 048
  10. CIBADREX [Concomitant]
     Active Substance: BENAZEPRIL HYDROCHLORIDE
     Dosage: 1 DF, DAILY
     Route: 048
  11. CARDENSIEL [Concomitant]
     Active Substance: BISOPROLOL FUMARATE
     Dosage: 2.5 MG, DAILY
     Route: 048

REACTIONS (11)
  - Somnolence [Unknown]
  - Disorientation [None]
  - International normalised ratio increased [Recovered/Resolved]
  - Hypotension [Unknown]
  - Hyponatraemia [Recovered/Resolved]
  - Vomiting [Unknown]
  - Muscle haemorrhage [Recovering/Resolving]
  - Confusional state [Recovered/Resolved]
  - Balance disorder [None]
  - Overdose [Unknown]
  - Acute kidney injury [Recovering/Resolving]

NARRATIVE: CASE EVENT DATE: 20141111
